FAERS Safety Report 4977632-5 (Version None)
Quarter: 2006Q2

REPORT INFORMATION
  Report Type: 
  Country: None (occurrence: None)
  Receive Date: 20060420
  Receipt Date: 20050810
  Transmission Date: 20061013
  Serious: No
  Sender: FDA-Public Use
  Company Number: US-GLAXOSMITHKLINE-A0569687A

PATIENT
  Age: 37 Year
  Sex: Female

DRUGS (3)
  1. ESKALITH [Suspect]
     Dosage: 300MG THREE TIMES PER DAY
     Route: 048
     Dates: start: 20050501
  2. LITHIUM CARBONATE [Suspect]
     Dosage: 300MG THREE TIMES PER DAY
     Route: 048
     Dates: start: 20050501, end: 20050501
  3. CLARITIN [Concomitant]

REACTIONS (3)
  - ARRHYTHMIA [None]
  - DYSPNOEA [None]
  - PHARMACEUTICAL PRODUCT COMPLAINT [None]
